FAERS Safety Report 6779423-1 (Version None)
Quarter: 2010Q2

REPORT INFORMATION
  Report Type: 
  Country: None (occurrence: None)
  Receive Date: 20100618
  Receipt Date: 20100609
  Transmission Date: 20101027
  Serious: Yes (Hospitalization, Other)
  Sender: FDA-Public Use
  Company Number: US-SANOFI-AVENTIS-2010SA034087

PATIENT
  Age: 62 Year
  Sex: Male
  Weight: 78 kg

DRUGS (6)
  1. PLAVIX [Suspect]
     Indication: MYOCARDIAL INFARCTION
     Route: 048
     Dates: start: 20080101, end: 20100501
  2. PLAVIX [Suspect]
     Route: 048
     Dates: start: 20080101, end: 20100501
  3. VASOTEC [Concomitant]
     Dates: start: 20080101
  4. LASIX [Concomitant]
     Dates: start: 20080101
  5. COREG [Concomitant]
     Dates: start: 20080101
  6. SIMVASTATIN [Concomitant]
     Dates: start: 20080101

REACTIONS (4)
  - CARDIAC FAILURE CONGESTIVE [None]
  - CORONARY ARTERY OCCLUSION [None]
  - DYSPNOEA [None]
  - NO THERAPEUTIC RESPONSE [None]
